FAERS Safety Report 5306907-5 (Version None)
Quarter: 2007Q2

REPORT INFORMATION
  Report Type: 
  Country: None (occurrence: None)
  Receive Date: 20070425
  Receipt Date: 20070411
  Transmission Date: 20071010
  Serious: Yes (Hospitalization)
  Sender: FDA-Public Use
  Company Number: PHEH2007US05080

PATIENT
  Age: 52 Year
  Sex: Female
  Weight: 65.306 kg

DRUGS (2)
  1. WARFARIN SODIUM [Concomitant]
     Dosage: 5 MG, UNK
  2. EXJADE [Suspect]
     Indication: APLASTIC ANAEMIA
     Dosage: 1500 MG, QD
     Route: 048
     Dates: start: 20060301, end: 20070402

REACTIONS (3)
  - ALANINE AMINOTRANSFERASE INCREASED [None]
  - ASPARTATE AMINOTRANSFERASE INCREASED [None]
  - BLOOD BILIRUBIN INCREASED [None]
